FAERS Safety Report 10043235 (Version 1)
Quarter: 2014Q1

REPORT INFORMATION
  Report Type: Spontaneous
  Country: DK (occurrence: DK)
  Receive Date: 20140328
  Receipt Date: 20140328
  Transmission Date: 20141002
  Serious: Yes (Other)
  Sender: FDA-Public Use
  Company Number: DK-ROCHE-1373089

PATIENT
  Age: 45 Year
  Sex: Female

DRUGS (1)
  1. VEMURAFENIB [Suspect]
     Indication: PRODUCT USED FOR UNKNOWN INDICATION
     Route: 065

REACTIONS (1)
  - Angina pectoris [Unknown]
